FAERS Safety Report 5190770-X (Version None)
Quarter: 2006Q4

REPORT INFORMATION
  Report Type: 
  Country: None (occurrence: None)
  Receive Date: 20061215
  Receipt Date: 20061129
  Transmission Date: 20070319
  Serious: Yes (Other)
  Sender: FDA-Public Use
  Company Number: S06-NLD-05130-01

PATIENT
  Age: 38 Year
  Sex: Female

DRUGS (1)
  1. CIPAMIL [Suspect]
     Indication: DEPRESSION
     Dosage: 20 MG QD; PO
     Route: 048
     Dates: start: 20060221, end: 20060307

REACTIONS (2)
  - DYSPHEMIA [None]
  - MYOCLONUS [None]
